FAERS Safety Report 5270564-7 (Version None)
Quarter: 2007Q1

REPORT INFORMATION
  Report Type: 
  Country: None (occurrence: None)
  Receive Date: 20070315
  Receipt Date: 20070302
  Transmission Date: 20070707
  Serious: Yes (Hospitalization)
  Sender: FDA-Public Use
  Company Number: 237588

PATIENT
  Age: 75 Year
  Sex: Female

DRUGS (2)
  1. BEVACIZUMAB (BEVACIZUMAB) PWDR + SOLVENT, INFUSION SOLN, 100MG [Suspect]
     Indication: GLIOBLASTOMA MULTIFORME
     Dosage: 760 MG, Q2W, INTRAVENOUS
     Route: 042
     Dates: start: 20061222
  2. IRINOTECAN HCL [Suspect]
     Indication: GLIOBLASTOMA MULTIFORME
     Dosage: 231 MG, Q2W, INTRAVENOUS
     Route: 042
     Dates: start: 20061222

REACTIONS (7)
  - BLOOD PRESSURE DECREASED [None]
  - BODY TEMPERATURE INCREASED [None]
  - DYSSTASIA [None]
  - FALL [None]
  - HEART RATE DECREASED [None]
  - MUSCULAR WEAKNESS [None]
  - SPINAL OSTEOARTHRITIS [None]
